FAERS Safety Report 13656423 (Version 1)
Quarter: 2017Q2

REPORT INFORMATION
  Report Type: Spontaneous
  Country: US (occurrence: US)
  Receive Date: 20170615
  Receipt Date: 20170615
  Transmission Date: 20170830
  Serious: No
  Sender: FDA-Public Use
  Company Number: US-009507513-1706USA001130

PATIENT
  Age: 71 Year
  Sex: Female

DRUGS (14)
  1. REMERON [Suspect]
     Active Substance: MIRTAZAPINE
     Indication: DEPRESSION
     Dosage: UNK
     Route: 048
  2. LISDEXAMFETAMINE DIMESYLATE [Suspect]
     Active Substance: LISDEXAMFETAMINE DIMESYLATE
  3. BUPROPION HYDROCHLORIDE. [Suspect]
     Active Substance: BUPROPION HYDROCHLORIDE
  4. MODAFINIL. [Suspect]
     Active Substance: MODAFINIL
  5. AMPHETAMINE [Suspect]
     Active Substance: AMPHETAMINE
  6. DESVENLAFAXINE. [Suspect]
     Active Substance: DESVENLAFAXINE
  7. ASENAPINE MALEATE [Suspect]
     Active Substance: ASENAPINE MALEATE
  8. LITHIUM. [Suspect]
     Active Substance: LITHIUM
  9. REMERON [Suspect]
     Active Substance: MIRTAZAPINE
     Dosage: 15 MG, NIGHTLY
     Route: 048
  10. LEVOTHYROXINE SODIUM. [Suspect]
     Active Substance: LEVOTHYROXINE SODIUM
  11. ARIPIPRAZOLE. [Suspect]
     Active Substance: ARIPIPRAZOLE
  12. SERTRALINE HYDROCHLORIDE. [Suspect]
     Active Substance: SERTRALINE HYDROCHLORIDE
  13. DEXTROAMPHETAMINE. [Suspect]
     Active Substance: DEXTROAMPHETAMINE
  14. METHYLPHENIDATE. [Suspect]
     Active Substance: METHYLPHENIDATE

REACTIONS (1)
  - Drug ineffective [Unknown]
